FAERS Safety Report 8803660 (Version 1)
Quarter: 2012Q4

REPORT INFORMATION
  Report Type: 
  Country: US (occurrence: US)
  Receive Date: 20120924
  Receipt Date: 20120924
  Transmission Date: 20130627
  Serious: No
  Sender: FDA-Public Use
  Company Number: US-B.I. PHARMACEUTICALS,INC./RIDGEFIELD-2012-BP-23139BP

PATIENT
  Sex: Male
  Weight: 100 kg

DRUGS (3)
  1. MICARDIS HCT [Suspect]
     Indication: HYPERTENSION
     Route: 048
     Dates: start: 2011
  2. SYNTHROID [Concomitant]
     Indication: HYPOTHYROIDISM
     Dosage: 150 mg
     Route: 048
     Dates: start: 2002
  3. CRESTOR [Concomitant]
     Indication: BLOOD CHOLESTEROL INCREASED
     Route: 048
     Dates: start: 2009

REACTIONS (1)
  - Sensory disturbance [Not Recovered/Not Resolved]
